FAERS Safety Report 4979730-9 (Version None)
Quarter: 2006Q2

REPORT INFORMATION
  Report Type: 
  Country: None (occurrence: None)
  Receive Date: 20060418
  Receipt Date: 20060406
  Transmission Date: 20061013
  Serious: Yes (Hospitalization)
  Sender: FDA-Public Use
  Company Number: 2006049248

PATIENT
  Age: 73 Year
  Sex: Female

DRUGS (10)
  1. ARTHROTEC [Suspect]
     Indication: ILL-DEFINED DISORDER
     Dosage: ORAL
     Route: 048
  2. HUMIRA [Suspect]
     Indication: RHEUMATOID ARTHRITIS
     Dosage: (INTERVAL:  1 EVERY 2 WEEKS)
     Dates: start: 20040415
  3. ALENDRONIC ACID (ALENDRONIC ACID) [Suspect]
     Indication: ILL-DEFINED DISORDER
  4. ETIDRONIC ACID (ETIDRONIC ACID) [Suspect]
     Indication: ILL-DEFINED DISORDER
  5. FOLIC ACID [Suspect]
     Indication: ILL-DEFINED DISORDER
  6. OMEPRAZOLE [Suspect]
     Indication: ILL-DEFINED DISORDER
  7. RANITIDINE [Concomitant]
  8. ATENOLOL/CHLORTHALIDONE (ATENOLOL, CHLORTALIDONE) [Concomitant]
  9. METHOTREXATE [Concomitant]
  10. PREDNISOLONE [Concomitant]

REACTIONS (6)
  - DIARRHOEA [None]
  - GASTRIC INFECTION [None]
  - LYMPHOCYTE COUNT INCREASED [None]
  - NEUTROPHIL COUNT INCREASED [None]
  - URINARY TRACT INFECTION [None]
  - WHITE BLOOD CELL COUNT INCREASED [None]
